FAERS Safety Report 10643050 (Version 1)
Quarter: 2014Q4

REPORT INFORMATION
  Report Type: Spontaneous
  Country: US (occurrence: None)
  Receive Date: 20141121
  Receipt Date: 20141121
  Transmission Date: 20150529
  Serious: No
  Sender: FDA-Public Use
  Company Number: 163-10004-14083944

PATIENT
  Age: 55 Year
  Sex: Female

DRUGS (1)
  1. OTEZLA [Suspect]
     Active Substance: APREMILAST
     Indication: PSORIATIC ARTHROPATHY
     Route: 048
     Dates: start: 20140716

REACTIONS (8)
  - Arthralgia [None]
  - Feeling abnormal [None]
  - Middle ear effusion [None]
  - Depression [None]
  - Myalgia [None]
  - Crying [None]
  - Asthenia [None]
  - Psoriasis [None]

NARRATIVE: CASE EVENT DATE: 2014
